FAERS Safety Report 6104150-3 (Version None)
Quarter: 2009Q1

REPORT INFORMATION
  Report Type: 
  Country: None (occurrence: None)
  Receive Date: 20090305
  Receipt Date: 20090302
  Transmission Date: 20090719
  Serious: Yes (Hospitalization)
  Sender: FDA-Public Use
  Company Number: US-ELI_LILLY_AND_COMPANY-US200710007671

PATIENT
  Sex: Female
  Weight: 68.027 kg

DRUGS (17)
  1. BYETTA [Suspect]
     Indication: TYPE 2 DIABETES MELLITUS
     Dosage: 10 UG, 2/D
     Route: 058
  2. BYETTA [Suspect]
     Dosage: 5 UG, 2/D
     Route: 058
     Dates: start: 20060101, end: 20060101
  3. BYETTA [Suspect]
     Dosage: 10 UG, 2/D
     Route: 058
     Dates: start: 20060101, end: 20071001
  4. BYETTA [Suspect]
     Dosage: 5 UG, 2/D
     Route: 058
     Dates: start: 20071001
  5. BYETTA [Suspect]
     Dosage: 5 UG, 2/D
     Route: 058
  6. BYETTA [Suspect]
     Dosage: 10 UG, 2/D
     Route: 058
  7. METFORMIN [Concomitant]
     Indication: TYPE 2 DIABETES MELLITUS
     Dosage: 1000 D/F, UNK
     Route: 048
  8. TOPAMAX [Concomitant]
     Indication: BIPOLAR DISORDER
     Dates: start: 20071001
  9. DRUG USED IN DIABETES [Concomitant]
     Indication: TYPE 2 DIABETES MELLITUS
  10. NEXIUM [Concomitant]
  11. ASPIRIN [Concomitant]
  12. TRICOR [Concomitant]
  13. MELOXICAM [Concomitant]
  14. VITAMINS [Concomitant]
  15. ENABLEX                            /01760401/ [Concomitant]
  16. METOPROLOL SUCCINATE [Concomitant]
  17. XANAX [Concomitant]

REACTIONS (10)
  - BLOOD GLUCOSE INCREASED [None]
  - DECREASED APPETITE [None]
  - DRUG EFFECT DECREASED [None]
  - EATING DISORDER [None]
  - INCORRECT DOSE ADMINISTERED [None]
  - IRON DEFICIENCY ANAEMIA [None]
  - NAUSEA [None]
  - PURGING [None]
  - SELF-INDUCED VOMITING [None]
  - WEIGHT DECREASED [None]
